FAERS Safety Report 9288532 (Version 1)
Quarter: 2013Q2

REPORT INFORMATION
  Report Type: Spontaneous
  Country: US (occurrence: US)
  Receive Date: 20130514
  Receipt Date: 20130514
  Transmission Date: 20140414
  Serious: Yes (Other)
  Sender: FDA-Public Use
  Company Number: US-PERRIGO-13US004829

PATIENT
  Age: 11 Month
  Sex: Male
  Weight: 13.1 kg

DRUGS (1)
  1. TESTOSTERONE CYPIONATE USP RX 200 MG/ML 9Z8 [Suspect]
     Indication: PENILE SIZE REDUCED
     Dosage: UNKNOWN, UNKNOWN
     Route: 030

REACTIONS (4)
  - Pseudoprecocious puberty [Recovering/Resolving]
  - Off label use [Recovering/Resolving]
  - Penis disorder [None]
  - Congenital hair disorder [None]
